FAERS Safety Report 5801602-8 (Version None)
Quarter: 2008Q2

REPORT INFORMATION
  Report Type: 
  Country: None (occurrence: None)
  Receive Date: 20080626
  Receipt Date: 20071210
  Transmission Date: 20081010
  Serious: Yes (Other)
  Sender: FDA-Public Use
  Company Number: 536081

PATIENT
  Age: 36 Year
  Sex: Female

DRUGS (1)
  1. XELODA [Suspect]
     Indication: BREAST CANCER METASTATIC
     Dosage: 1500 MG 2 PER DAY
     Dates: start: 20070206, end: 20071127

REACTIONS (2)
  - BREAST CANCER METASTATIC [None]
  - DRUG EFFECT DECREASED [None]
